FAERS Safety Report 5960321-8 (Version None)
Quarter: 2008Q4

REPORT INFORMATION
  Report Type: 
  Country: None (occurrence: None)
  Receive Date: 20081120
  Receipt Date: 20081113
  Transmission Date: 20090506
  Serious: Yes (Death)
  Sender: FDA-Public Use
  Company Number: US-PURDUE-USA_2008_0035930

PATIENT
  Sex: Male

DRUGS (2)
  1. OXYCONTIN [Suspect]
     Indication: CANCER PAIN
     Dosage: 30 MG, Q8H
  2. OXYIR CAPSULES 5 MG [Suspect]
     Indication: CANCER PAIN
     Dosage: 5 MG, Q8H

REACTIONS (1)
  - DEATH [None]
